FAERS Safety Report 12600186 (Version 2)
Quarter: 2016Q3

REPORT INFORMATION
  Report Type: Report from Study
  Country: BR (occurrence: BR)
  Receive Date: 20160727
  Receipt Date: 20160822
  Transmission Date: 20161109
  Serious: Yes (Other)
  Sender: FDA-Public Use
  Company Number: PHHY2016BR101536

PATIENT
  Sex: Female

DRUGS (2)
  1. FORASEQ [Suspect]
     Active Substance: BUDESONIDE\FORMOTEROL FUMARATE
     Indication: SENSITIVITY TO WEATHER CHANGE
  2. FORASEQ [Suspect]
     Active Substance: BUDESONIDE\FORMOTEROL FUMARATE
     Indication: DYSPNOEA
     Dosage: 10 YEARS AGO
     Route: 065

REACTIONS (3)
  - Dementia Alzheimer^s type [Unknown]
  - Pneumonia [Unknown]
  - Product use issue [Unknown]
